FAERS Safety Report 6143443-0 (Version None)
Quarter: 2009Q2

REPORT INFORMATION
  Report Type: 
  Country: None (occurrence: None)
  Receive Date: 20090401
  Receipt Date: 20090324
  Transmission Date: 20091009
  Serious: Yes (Other)
  Sender: FDA-Public Use
  Company Number: 2009S1000105

PATIENT
  Age: 15 Year
  Sex: Male

DRUGS (2)
  1. CUBICIN [Suspect]
     Indication: STAPHYLOCOCCAL BACTERAEMIA
     Dosage: 6 MG/KG;
  2. VANCOMYCIN HCL [Concomitant]

REACTIONS (12)
  - ANTIBIOTIC LEVEL BELOW THERAPEUTIC [None]
  - CARDIAC VALVE VEGETATION [None]
  - CEREBELLAR INFARCTION [None]
  - CSF CULTURE POSITIVE [None]
  - DRUG RESISTANCE [None]
  - ENDOCARDITIS [None]
  - HAEMORRHAGIC CEREBRAL INFARCTION [None]
  - HYPOTENSION [None]
  - INCORRECT DOSE ADMINISTERED [None]
  - STAPHYLOCOCCAL BACTERAEMIA [None]
  - STAPHYLOCOCCAL INFECTION [None]
  - THERAPEUTIC PRODUCT INEFFECTIVE FOR UNAPPROVED INDICATION [None]
